FAERS Safety Report 4907987-9 (Version None)
Quarter: 2006Q1

REPORT INFORMATION
  Report Type: 
  Country: None (occurrence: None)
  Receive Date: 20060210
  Receipt Date: 20041012
  Transmission Date: 20060701
  Serious: Yes (Other)
  Sender: FDA-Public Use
  Company Number: PHRM2004FR03104

PATIENT
  Age: 34 Year
  Sex: Female

DRUGS (1)
  1. GLEEVEC [Suspect]
     Dosage: FOETAL DRUG EXPOSURE VIA FATHER

REACTIONS (2)
  - CAESAREAN SECTION [None]
  - TRANSMISSION OF DRUG VIA SEMEN [None]
